FAERS Safety Report 24702643 (Version 1)
Quarter: 2024Q4

REPORT INFORMATION
  Report Type: Spontaneous
  Country: US (occurrence: None)
  Receive Date: 20241205
  Receipt Date: 20241205
  Transmission Date: 20250115
  Serious: Yes (unspecified)
  Sender: Public
  Company Number: None

PATIENT
  Sex: 0

DRUGS (1)
  1. ATROPINE SULFATE [Suspect]
     Active Substance: ATROPINE SULFATE
     Indication: Bradycardia
     Dosage: FREQUENCY : AS NEEDED;?
     Route: 042

REACTIONS (1)
  - Device breakage [None]

NARRATIVE: CASE EVENT DATE: 20241121
